FAERS Safety Report 18979927 (Version 1)
Quarter: 2021Q1

REPORT INFORMATION
  Report Type: Spontaneous
  Country: US (occurrence: US)
  Receive Date: 20210308
  Receipt Date: 20210308
  Transmission Date: 20210420
  Serious: Yes (Other)
  Sender: FDA-Public Use
  Company Number: US-SHILPA MEDICARE LIMITED-SML-US-2021-00257

PATIENT
  Age: 51 Year
  Sex: Male

DRUGS (3)
  1. 5?FLUOROURACIL [Suspect]
     Active Substance: FLUOROURACIL
     Indication: OESOPHAGEAL SQUAMOUS CELL CARCINOMA
     Route: 065
  2. CAPECITABINE, UNKNOWN [Suspect]
     Active Substance: CAPECITABINE
     Indication: OESOPHAGEAL SQUAMOUS CELL CARCINOMA
     Route: 065
  3. OXALIPLATIN. [Suspect]
     Active Substance: OXALIPLATIN
     Indication: OESOPHAGEAL SQUAMOUS CELL CARCINOMA
     Route: 065

REACTIONS (2)
  - Pericarditis [Unknown]
  - Diarrhoea [Unknown]
